FAERS Safety Report 8481135-3 (Version None)
Quarter: 2012Q3

REPORT INFORMATION
  Report Type: 
  Country: None (occurrence: None)
  Receive Date: 20120702
  Receipt Date: 20120626
  Transmission Date: 20120928
  Serious: Yes (Other)
  Sender: FDA-Public Use
  Company Number: PHHY2012JP055829

PATIENT
  Age: 80 Year
  Sex: Female

DRUGS (2)
  1. EXELON [Suspect]
     Dosage: 4.5 MG, DAILY
     Route: 062
  2. EXELON [Suspect]
     Dosage: 9 MG, DAILY
     Route: 062

REACTIONS (6)
  - HALLUCINATION, VISUAL [None]
  - HALLUCINATION [None]
  - PANCREATITIS ACUTE [None]
  - PYREXIA [None]
  - GASTROOESOPHAGEAL REFLUX DISEASE [None]
  - AGITATION [None]
